FAERS Safety Report 23333756 (Version 1)
Quarter: 2023Q4

REPORT INFORMATION
  Report Type: Spontaneous
  Country: GB (occurrence: GB)
  Receive Date: 20231223
  Receipt Date: 20231223
  Transmission Date: 20240109
  Serious: Yes (Life-Threatening, Other)
  Sender: FDA-Public Use
  Company Number: GB-CELLTRION INC.-2023GB024453

PATIENT

DRUGS (3)
  1. TRUXIMA [Suspect]
     Active Substance: RITUXIMAB-ABBS
     Indication: Adverse drug reaction
     Dosage: PREVIOUS CYCLE
     Dates: start: 202201
  2. TRUXIMA [Suspect]
     Active Substance: RITUXIMAB-ABBS
     Indication: Undifferentiated connective tissue disease
     Dosage: FIRST DOSE OF CYCLE 3
     Dates: start: 20231108
  3. TRUXIMA [Suspect]
     Active Substance: RITUXIMAB-ABBS
     Dosage: 1G; DOSE 2 OF THIRD CYCLE
     Dates: start: 20231213, end: 20231213

REACTIONS (2)
  - Anaphylactic shock [Recovered/Resolved]
  - Intentional product use issue [Unknown]

NARRATIVE: CASE EVENT DATE: 20231213
